FAERS Safety Report 9366673 (Version 1)
Quarter: 2013Q2

REPORT INFORMATION
  Report Type: Spontaneous
  Country: US (occurrence: US)
  Receive Date: 20130625
  Receipt Date: 20130625
  Transmission Date: 20140414
  Serious: Yes (Other)
  Sender: FDA-Public Use
  Company Number: US-TEVA-405553USA

PATIENT
  Sex: Female

DRUGS (5)
  1. ESCITALOPRAM [Suspect]
     Indication: NERVOUSNESS
     Dosage: 10 MILLIGRAM DAILY;
     Route: 048
     Dates: start: 20130508
  2. LEVOTHYROXINE SODIUM [Concomitant]
     Dosage: .1 MILLIGRAM DAILY;
     Route: 048
  3. LANSOPRAZOLE [Concomitant]
     Dosage: 30 MILLIGRAM DAILY; DELAYED RELEASE
     Route: 048
  4. MULTIVITAMINS AND IRON [Concomitant]
  5. PYRIDOXINE HYDROCHLORIDE [Concomitant]

REACTIONS (12)
  - Myocardial infarction [Unknown]
  - Hip arthroplasty [Unknown]
  - Type V hyperlipidaemia [Unknown]
  - Osteoarthritis [Unknown]
  - Chest discomfort [Unknown]
  - Dyspnoea [Unknown]
  - Anxiety [Unknown]
  - Muscle twitching [Unknown]
  - Headache [Not Recovered/Not Resolved]
  - Dizziness [Not Recovered/Not Resolved]
  - Diarrhoea [Not Recovered/Not Resolved]
  - Hypothyroidism [Unknown]
